FAERS Safety Report 19652546 (Version 1)
Quarter: 2021Q3

REPORT INFORMATION
  Report Type: Report from Study
  Country: US (occurrence: US)
  Receive Date: 20210803
  Receipt Date: 20210803
  Transmission Date: 20211014
  Serious: Yes (Other)
  Sender: FDA-Public Use
  Company Number: US-KYOWAKIRIN-2021BKK013150

PATIENT

DRUGS (1)
  1. CRYSVITA [Suspect]
     Active Substance: BUROSUMAB-TWZA
     Indication: HYPOPHOSPHATAEMIA
     Dosage: 40 MG, EVERY 2 WEEKS
     Route: 058
     Dates: start: 20210401

REACTIONS (2)
  - Ear infection bacterial [Unknown]
  - Sinusitis bacterial [Unknown]

NARRATIVE: CASE EVENT DATE: 2021
